FAERS Safety Report 5753844-8 (Version None)
Quarter: 2008Q2

REPORT INFORMATION
  Report Type: 
  Country: None (occurrence: None)
  Receive Date: 20080530
  Receipt Date: 20070628
  Transmission Date: 20081010
  Serious: No
  Sender: FDA-Public Use
  Company Number: A0656118A

PATIENT
  Age: 62 Year
  Sex: Male
  Weight: 119 kg

DRUGS (14)
  1. FLOLAN [Suspect]
     Indication: PULMONARY ARTERIAL HYPERTENSION
     Route: 065
  2. OXYGEN [Concomitant]
     Route: 045
  3. LASIX [Concomitant]
     Dosage: 80MG TWICE PER DAY
     Route: 048
  4. PREDNISONE TAB [Concomitant]
     Dosage: 20MG PER DAY
     Route: 048
  5. POTASSIUM TARTRATE [Concomitant]
     Dosage: 10MEQ TWICE PER DAY
     Route: 048
  6. ALBUTEROL [Concomitant]
     Dosage: 1UNIT FOUR TIMES PER DAY
     Route: 045
  7. ADVIL [Concomitant]
     Dosage: 200MG AS REQUIRED
     Route: 048
  8. ASPIRIN [Concomitant]
     Dosage: 81MG PER DAY
     Route: 048
  9. ONE-A-DAY MEN'S VITAMINS [Concomitant]
     Dosage: 1TAB PER DAY
     Route: 048
  10. VITAMIN E [Concomitant]
     Dosage: 1CAP PER DAY
     Route: 048
  11. MUCINEX [Concomitant]
     Dosage: 600MG PER DAY
     Route: 048
  12. PERCOCET [Concomitant]
     Route: 048
  13. TRACLEER [Concomitant]
     Dosage: 125MG TWICE PER DAY
     Route: 048
  14. ASCORBIC ACID [Concomitant]
     Dosage: 500MG PER DAY
     Route: 048

REACTIONS (4)
  - DYSPNOEA [None]
  - HEADACHE [None]
  - OXYGEN SATURATION DECREASED [None]
  - PAIN IN JAW [None]
